FAERS Safety Report 4952893-7 (Version None)
Quarter: 2006Q1

REPORT INFORMATION
  Report Type: 
  Country: None (occurrence: None)
  Receive Date: 20060320
  Receipt Date: 20040517
  Transmission Date: 20060701
  Serious: Yes (Other)
  Sender: FDA-Public Use
  Company Number: 2004214084US

PATIENT
  Sex: Female

DRUGS (1)
  1. MEDROL [Suspect]
     Indication: ILL-DEFINED DISORDER
     Dates: start: 20021101

REACTIONS (8)
  - DEPRESSION [None]
  - GASTROOESOPHAGEAL REFLUX DISEASE [None]
  - MALAISE [None]
  - MENTAL DISORDER [None]
  - OESOPHAGITIS [None]
  - TOOTH LOSS [None]
  - VOMITING [None]
  - WEIGHT INCREASED [None]
